FAERS Safety Report 13558995 (Version 2)
Quarter: 2017Q2

REPORT INFORMATION
  Report Type: Other
  Country: IT (occurrence: IT)
  Receive Date: 20170518
  Receipt Date: 20170522
  Transmission Date: 20170830
  Serious: Yes (Life-Threatening)
  Sender: FDA-Public Use
  Company Number: IT-HIKMA PHARMACEUTICALS CO. LTD-2017IT006288

PATIENT

DRUGS (1)
  1. INFLECTRA [Suspect]
     Active Substance: INFLIXIMAB-DYYB
     Indication: SPONDYLITIS
     Dosage: 400 MG, MONTHLY
     Route: 065
     Dates: start: 20150101, end: 20160801

REACTIONS (1)
  - Lung adenocarcinoma [Not Recovered/Not Resolved]

NARRATIVE: CASE EVENT DATE: 20160811
